FAERS Safety Report 9096718 (Version 1)
Quarter: 2013Q1

REPORT INFORMATION
  Report Type: Spontaneous
  Country: GB (occurrence: None)
  Receive Date: 20130124
  Receipt Date: 20130124
  Transmission Date: 20140127
  Serious: Yes (Hospitalization, Other)
  Sender: FDA-Public Use
  Company Number: GER/UKI/13/0027533

PATIENT
  Age: 81 Year
  Sex: Male
  Weight: 79.6 kg

DRUGS (9)
  1. FLUOXETINE (FLUOXETINE) [Suspect]
     Indication: DEPRESSION
     Route: 048
     Dates: start: 20050919, end: 20121217
  2. BENDROFLUMETHIAZIDE (BENDROFLUMETHIAZIDE) [Suspect]
     Indication: HYPERTENSION
     Route: 048
     Dates: start: 20070305, end: 20121217
  3. BRINZOLAMIDE (BRINZOLAMIDE) [Concomitant]
  4. IRBESARTAN (IRBESARTAN) [Concomitant]
  5. LATANOPROST (LATANOPROST) (NONE) [Concomitant]
  6. PARACETAMOL (PARACETAMOL) [Concomitant]
  7. SIMVASTATIN (SIMVASTATIN) [Concomitant]
  8. TIMOPTOL-LA (TIMOLOL MALEATE) [Concomitant]
  9. ZOLPIDEM (ZOLPIDEM TARTRATE) [Concomitant]

REACTIONS (5)
  - Confusional state [None]
  - Fall [None]
  - Fatigue [None]
  - Hyponatraemia [None]
  - Lethargy [None]
